FAERS Safety Report 9081599 (Version 1)
Quarter: 2013Q1

REPORT INFORMATION
  Report Type: Spontaneous
  Country: US (occurrence: US)
  Receive Date: 20130130
  Receipt Date: 20130130
  Transmission Date: 20140127
  Serious: Yes (Hospitalization)
  Sender: FDA-Public Use
  Company Number: US-ABBOTT-12P-163-0967846-00

PATIENT
  Age: 69 Year
  Sex: Male

DRUGS (1)
  1. HUMIRA 40 MG/0.8 ML PEN [Suspect]
     Indication: PSORIASIS
     Dates: start: 20120423, end: 20120523

REACTIONS (4)
  - Back pain [Recovering/Resolving]
  - Chest pain [Recovering/Resolving]
  - Lupus-like syndrome [Not Recovered/Not Resolved]
  - Pain [Not Recovered/Not Resolved]
